FAERS Safety Report 13381727 (Version 1)
Quarter: 2017Q1

REPORT INFORMATION
  Report Type: Spontaneous
  Country: US (occurrence: US)
  Receive Date: 20170329
  Receipt Date: 20170329
  Transmission Date: 20170429
  Serious: No
  Sender: FDA-Public Use
  Company Number: None

PATIENT

DRUGS (2)
  1. ELASTROMERIC PUMP [Suspect]
     Active Substance: DEVICE
  2. 5-FU [Suspect]
     Active Substance: FLUOROURACIL

REACTIONS (5)
  - Pulmonary embolism [None]
  - Full blood count decreased [None]
  - Diarrhoea [None]
  - Accidental overdose [None]
  - Device infusion issue [None]

NARRATIVE: CASE EVENT DATE: 2017
